FAERS Safety Report 14698238 (Version 1)
Quarter: 2018Q1

REPORT INFORMATION
  Report Type: Spontaneous
  Country: RU (occurrence: RU)
  Receive Date: 20180330
  Receipt Date: 20180330
  Transmission Date: 20180509
  Serious: Yes (Hospitalization)
  Sender: FDA-Public Use
  Company Number: RU-ASTRAZENECA-2017SF07107

PATIENT
  Age: 70 Year
  Sex: Female
  Weight: 97 kg

DRUGS (9)
  1. BETALOC ZOK [Concomitant]
     Active Substance: METOPROLOL SUCCINATE
  2. TORVACARD [Concomitant]
     Active Substance: ATORVASTATIN CALCIUM
  3. ASPIRIN CARDIO [Concomitant]
     Active Substance: ASPIRIN
  4. INSULIN [Concomitant]
     Active Substance: INSULIN NOS
  5. CAPTOPRIL. [Concomitant]
     Active Substance: CAPTOPRIL
  6. BERLIPRIL [Concomitant]
     Active Substance: ENALAPRIL MALEATE
  7. BRILINTA [Suspect]
     Active Substance: TICAGRELOR
     Indication: MYOCARDIAL INFARCTION
     Route: 048
     Dates: start: 201701
  8. NORMODIPINE [Concomitant]
     Active Substance: AMLODIPINE BESYLATE
  9. TORASEMIDE [Concomitant]
     Active Substance: TORSEMIDE

REACTIONS (5)
  - Contusion [Not Recovered/Not Resolved]
  - Product prescribing issue [Unknown]
  - Dysphonia [Not Recovered/Not Resolved]
  - Off label use [Unknown]
  - Angina unstable [Recovered/Resolved]

NARRATIVE: CASE EVENT DATE: 201702
